FAERS Safety Report 9819740 (Version 2)
Quarter: 2014Q1

REPORT INFORMATION
  Report Type: Spontaneous
  Country: MM (occurrence: MM)
  Receive Date: 20140116
  Receipt Date: 20140116
  Transmission Date: 20141002
  Serious: Yes (Death, Life-Threatening, Hospitalization)
  Sender: FDA-Public Use
  Company Number: MM-ROCHE-1329603

PATIENT
  Age: 30 Year
  Sex: Female

DRUGS (2)
  1. PEGASYS [Suspect]
     Indication: HEPATITIS C
     Dosage: 180 MCG/0.5 ML.  STARTED IN IN FIFTH WEEK OF MAY STOPPED IN FIRST WEEK OF DEC.
     Route: 058
  2. ROBATROL [Suspect]
     Indication: HEPATITIS C
     Dosage: START DATE: FIFTH WEEK OF MAY. END DATE: FIRST WEEK OF DECEMBER.
     Route: 048

REACTIONS (3)
  - Coma [Fatal]
  - Depressed level of consciousness [Not Recovered/Not Resolved]
  - Dizziness [Not Recovered/Not Resolved]
